FAERS Safety Report 5819230-7 (Version None)
Quarter: 2008Q3

REPORT INFORMATION
  Report Type: 
  Country: None (occurrence: None)
  Receive Date: 20080723
  Receipt Date: 20080720
  Transmission Date: 20090109
  Serious: Yes (Other)
  Sender: FDA-Public Use
  Company Number: GB-ROCHE-576802

PATIENT
  Sex: Female
  Weight: 85.7 kg

DRUGS (5)
  1. ORLISTAT [Suspect]
     Indication: OBESITY
     Route: 048
     Dates: start: 20080122
  2. GLUCOSAMINE [Concomitant]
     Dosage: INDICATION REPORTED AS 'JOINTS'.
     Route: 048
  3. BECLOMETHASONE DIPROPIONATE [Concomitant]
     Indication: ASTHMA
     Route: 055
  4. ALBUTEROL [Concomitant]
     Indication: ASTHMA
     Route: 055
  5. MONTELUKAST SODIUM [Concomitant]
     Indication: ASTHMA
     Route: 048

REACTIONS (1)
  - ANGINA PECTORIS [None]
